FAERS Safety Report 5497969-3 (Version None)
Quarter: 2007Q4

REPORT INFORMATION
  Report Type: 
  Country: None (occurrence: None)
  Receive Date: 20071025
  Receipt Date: 20071023
  Transmission Date: 20080405
  Serious: Yes (Disabling, Other)
  Sender: FDA-Public Use
  Company Number: CN-ASTRAZENECA-2007AP05799

PATIENT
  Age: 120 Month
  Sex: Female
  Weight: 30 kg

DRUGS (5)
  1. LOSEC [Suspect]
     Indication: GASTRITIS
     Dosage: DOSAGE NOT KNOWN.
     Route: 048
     Dates: start: 20070902, end: 20070914
  2. SODIUM CHLORIDE [Concomitant]
     Route: 042
     Dates: start: 20070901
  3. DEXAMETHASONE 0.5MG TAB [Concomitant]
     Route: 042
     Dates: start: 20070901
  4. VITAMIN [Concomitant]
     Route: 042
     Dates: start: 20070901
  5. ANTIBIOTICS [Concomitant]

REACTIONS (3)
  - ALOPECIA [None]
  - BLINDNESS TRANSIENT [None]
  - VISION BLURRED [None]
